FAERS Safety Report 6303673-1 (Version None)
Quarter: 2009Q3

REPORT INFORMATION
  Report Type: 
  Country: None (occurrence: None)
  Receive Date: 20090807
  Receipt Date: 20090807
  Transmission Date: 20100115
  Serious: Yes (Hospitalization, Disabling, Other)
  Sender: FDA-Public Use
  Company Number: None

PATIENT
  Age: 60 Year
  Sex: Female
  Weight: 70.3075 kg

DRUGS (2)
  1. FOSAMAX [Suspect]
     Indication: OSTEOPOROSIS
     Dosage: FOSOMAX WEEKLY PO
     Route: 048
     Dates: start: 19900602, end: 20080915
  2. PREMARIN [Suspect]
     Indication: MENOPAUSE
     Dosage: PREMARIN DAILY PO
     Route: 048
     Dates: start: 19900602, end: 20080915

REACTIONS (4)
  - FEMUR FRACTURE [None]
  - FOOT FRACTURE [None]
  - GAIT DISTURBANCE [None]
  - MUSCLE STRAIN [None]
